FAERS Safety Report 13580399 (Version 1)
Quarter: 2017Q2

REPORT INFORMATION
  Report Type: Spontaneous
  Country: US (occurrence: US)
  Receive Date: 20170525
  Receipt Date: 20170525
  Transmission Date: 20170830
  Serious: Yes (Life-Threatening, Hospitalization)
  Sender: FDA-Public Use
  Company Number: None

PATIENT
  Age: 69 Year
  Sex: Male

DRUGS (2)
  1. ONDANSETRON [Suspect]
     Active Substance: ONDANSETRON
     Indication: NAUSEA
     Route: 042
     Dates: start: 20160425, end: 20160427
  2. ONDANSETRON [Suspect]
     Active Substance: ONDANSETRON
     Indication: URINARY TRACT INFECTION
     Route: 042
     Dates: start: 20160425, end: 20160427

REACTIONS (6)
  - Dyspnoea [None]
  - Obstructive airways disorder [None]
  - Anaphylactic reaction [None]
  - Wheezing [None]
  - Stridor [None]
  - Cough [None]

NARRATIVE: CASE EVENT DATE: 20160428
